FAERS Safety Report 22263187 (Version 2)
Quarter: 2023Q2

REPORT INFORMATION
  Report Type: Spontaneous
  Country: IN (occurrence: IN)
  Receive Date: 20230428
  Receipt Date: 20230510
  Transmission Date: 20230722
  Serious: Yes (Hospitalization, Other)
  Sender: FDA-Public Use
  Company Number: None

PATIENT
  Age: 31 Year
  Sex: Female

DRUGS (2)
  1. MYCOPHENOLATE MOFETIL [Suspect]
     Active Substance: MYCOPHENOLATE MOFETIL
     Indication: Lupus nephritis
     Dosage: 500 MILLIGRAM, BID (EVERY 12 HOUR)
     Route: 065
  2. PREDNISONE [Suspect]
     Active Substance: PREDNISONE
     Indication: Steroid therapy
     Dosage: 50 MILLIGRAM, QD (EVERY 24 HOUR)
     Route: 048

REACTIONS (6)
  - Endocarditis bacterial [Recovering/Resolving]
  - Tricuspid valve incompetence [Recovering/Resolving]
  - Ventricular hypokinesia [Recovering/Resolving]
  - Bacteraemia [Recovered/Resolved]
  - Erysipelothrix infection [Recovering/Resolving]
  - Right ventricular dysfunction [Recovering/Resolving]
